FAERS Safety Report 9868365 (Version 2)
Quarter: 2014Q1

REPORT INFORMATION
  Report Type: Report from Study
  Country: JP (occurrence: JP)
  Receive Date: 20140204
  Receipt Date: 20140204
  Transmission Date: 20141002
  Serious: Yes (Hospitalization, Other)
  Sender: FDA-Public Use
  Company Number: JP-SA-THYM-1003726

PATIENT
  Age: 29 Year
  Sex: Male
  Weight: 58 kg

DRUGS (37)
  1. THYMOGLOBULINE [Suspect]
     Indication: BONE MARROW CONDITIONING REGIMEN
     Dosage: 150 MG, QD
     Route: 065
     Dates: start: 20120401, end: 20120402
  2. CICLOSPORIN [Suspect]
     Indication: PROPHYLAXIS AGAINST GRAFT VERSUS HOST DISEASE
     Dosage: UNK
     Route: 065
     Dates: start: 20120404, end: 20120612
  3. CICLOSPORIN [Suspect]
     Indication: GRAFT VERSUS HOST DISEASE
     Dosage: UNK
     Route: 065
     Dates: start: 20120404, end: 20120612
  4. CICLOSPORIN [Suspect]
     Indication: PROPHYLAXIS AGAINST GRAFT VERSUS HOST DISEASE
     Dosage: UNK
     Route: 065
     Dates: start: 20120613
  5. CICLOSPORIN [Suspect]
     Indication: GRAFT VERSUS HOST DISEASE
     Dosage: UNK
     Route: 065
     Dates: start: 20120613
  6. PREDNISOLONE [Suspect]
     Indication: ACUTE GRAFT VERSUS HOST DISEASE
     Dosage: UNK
     Route: 065
     Dates: start: 20120419, end: 20120723
  7. METHYLPREDNISOLONE SODIUM SUCCINATE [Concomitant]
     Indication: PREMEDICATION
     Dosage: UNK
     Dates: start: 20120401, end: 20120402
  8. ACICLOVIR [Concomitant]
     Indication: INFECTION PROPHYLAXIS
     Dosage: UNK
     Dates: start: 20120401, end: 20120514
  9. ACICLOVIR [Concomitant]
     Indication: INFECTION PROPHYLAXIS
     Dosage: UNK
     Dates: start: 20120515
  10. FLUCONAZOLE [Concomitant]
     Indication: INFECTION PROPHYLAXIS
     Dosage: UNK
     Dates: start: 20120401, end: 20120520
  11. OMEPRAZOLE [Concomitant]
     Indication: PROPHYLAXIS AGAINST GASTROINTESTINAL ULCER
     Dosage: UNK
     Dates: start: 20120401, end: 20120424
  12. CEFEPIME HYDROCHLORIDE [Concomitant]
     Indication: INFECTION PROPHYLAXIS
     Dosage: UNK
     Dates: start: 20120401, end: 20120406
  13. HYDROCORTISONE SODIUM PHOSPHATE [Concomitant]
     Indication: PREMEDICATION
     Dosage: UNK
     Dates: start: 20120401, end: 20120402
  14. GRANISETRON HYDROCHLORIDE [Concomitant]
     Indication: PROPHYLAXIS OF NAUSEA AND VOMITING
     Dosage: UNK
     Dates: start: 20120402, end: 20120404
  15. GRANISETRON HYDROCHLORIDE [Concomitant]
     Indication: RADIOTHERAPY
     Dosage: UNK
     Dates: start: 20120402, end: 20120404
  16. METHOTREXATE [Concomitant]
     Indication: PROPHYLAXIS AGAINST GRAFT VERSUS HOST DISEASE
     Dosage: UNK
     Dates: start: 20120406, end: 20120406
  17. METHOTREXATE [Concomitant]
     Indication: PROPHYLAXIS AGAINST GRAFT VERSUS HOST DISEASE
     Dosage: UNK
     Dates: start: 20120408, end: 20120408
  18. METHOTREXATE [Concomitant]
     Indication: PROPHYLAXIS AGAINST GRAFT VERSUS HOST DISEASE
     Dosage: UNK
     Dates: start: 20120411, end: 20120411
  19. METHOTREXATE [Concomitant]
     Indication: PROPHYLAXIS AGAINST GRAFT VERSUS HOST DISEASE
     Dosage: UNK
     Dates: start: 20120416, end: 20120417
  20. ALL OTHER THERAPEUTIC PRODUCTS [Concomitant]
     Indication: PROPHYLAXIS
     Dosage: UNK
     Dates: start: 20120405, end: 20120405
  21. CALCIUM FOLINATE [Concomitant]
     Indication: PROPHYLAXIS
     Dosage: UNK
     Dates: start: 20120407, end: 20120407
  22. CALCIUM FOLINATE [Concomitant]
     Indication: PROPHYLAXIS
     Dosage: UNK
     Dates: start: 20120409, end: 20120409
  23. CALCIUM FOLINATE [Concomitant]
     Indication: PROPHYLAXIS
     Dosage: UNK
     Dates: start: 20120412, end: 20120412
  24. NORMAL HUMAN IMMUNOGLOBULIN [Concomitant]
     Indication: INFECTION PROPHYLAXIS
     Dosage: UNK
     Dates: start: 20120412, end: 20120413
  25. NORMAL HUMAN IMMUNOGLOBULIN [Concomitant]
     Indication: INFECTION PROPHYLAXIS
     Dosage: UNK
     Dates: start: 20120426, end: 20120427
  26. NORMAL HUMAN IMMUNOGLOBULIN [Concomitant]
     Indication: INFECTION PROPHYLAXIS
     Dosage: UNK
     Dates: start: 20120506, end: 20120507
  27. NORMAL HUMAN IMMUNOGLOBULIN [Concomitant]
     Indication: INFECTION PROPHYLAXIS
     Dosage: UNK
     Dates: start: 20120510, end: 20120511
  28. NORMAL HUMAN IMMUNOGLOBULIN [Concomitant]
     Indication: INFECTION PROPHYLAXIS
     Dosage: UNK
     Dates: start: 20120705, end: 20120706
  29. METHOTREXATE [Concomitant]
     Dosage: UNK
     Route: 037
     Dates: start: 201207, end: 201207
  30. FILGRASTIM [Concomitant]
     Indication: NEUTROPHIL COUNT DECREASED
     Dosage: UNK
     Dates: start: 201207
  31. SULFAMETHOPRIM [Concomitant]
     Indication: INFECTION PROPHYLAXIS
     Dosage: UNK
     Dates: start: 20120403, end: 20120403
  32. SULFAMETHOPRIM [Concomitant]
     Indication: INFECTION PROPHYLAXIS
     Dosage: UNK
     Dates: start: 20120501
  33. URSODEOXYCHOLIC ACID [Concomitant]
     Indication: PROPHYLAXIS
     Dosage: UNK
     Dates: start: 20120401
  34. BROTIZOLAM [Concomitant]
     Indication: INSOMNIA
     Dosage: UNK
     Dates: start: 20120401
  35. LANSOPRAZOLE [Concomitant]
     Indication: PROPHYLAXIS AGAINST GASTROINTESTINAL ULCER
     Dosage: UNK
     Dates: start: 20120425
  36. FLUCONAZOLE [Concomitant]
     Indication: INFECTION PROPHYLAXIS
     Dosage: UNK
     Dates: start: 20120521
  37. THERAPEUTIC RADIOPHARMACEUTICALS [Concomitant]
     Indication: BONE MARROW CONDITIONING REGIMEN
     Dosage: UNK
     Dates: start: 20120404, end: 20120406

REACTIONS (11)
  - Obliterative bronchiolitis [Recovering/Resolving]
  - Acute graft versus host disease [Recovering/Resolving]
  - Acute graft versus host disease in skin [Not Recovered/Not Resolved]
  - Chronic graft versus host disease [Unknown]
  - Febrile neutropenia [Recovered/Resolved]
  - Cytomegalovirus test positive [Recovered/Resolved]
  - Cytomegalovirus test positive [Recovered/Resolved]
  - Conjunctivitis [Recovered/Resolved]
  - Hypertension [Recovered/Resolved]
  - Bronchitis [Recovered/Resolved]
  - Cytomegalovirus test positive [Recovered/Resolved]
